FAERS Safety Report 20054014 (Version 2)
Quarter: 2021Q4

REPORT INFORMATION
  Report Type: Report from Study
  Country: LB (occurrence: LB)
  Receive Date: 20211110
  Receipt Date: 20211116
  Transmission Date: 20220304
  Serious: Yes (Hospitalization)
  Sender: FDA-Public Use
  Company Number: LB-AMGEN-LBNSL2021172366

PATIENT
  Age: 10 Year
  Sex: Female

DRUGS (3)
  1. BLINCYTO [Suspect]
     Active Substance: BLINATUMOMAB
     Indication: Acute lymphocytic leukaemia
     Dosage: UNK
     Route: 065
     Dates: start: 20211028, end: 20211029
  2. BLINCYTO [Suspect]
     Active Substance: BLINATUMOMAB
     Dosage: 5 MICROGRAM
     Route: 065
     Dates: start: 20211029, end: 202110
  3. BLINCYTO [Suspect]
     Active Substance: BLINATUMOMAB
     Dosage: 10 MICROGRAM/HOUR
     Route: 065
     Dates: start: 20211030

REACTIONS (9)
  - Dysphagia [Unknown]
  - Hypoaesthesia [Unknown]
  - Vertigo [Unknown]
  - Blood pressure decreased [Unknown]
  - Pain in extremity [Unknown]
  - Nausea [Unknown]
  - Pyrexia [Unknown]
  - Oedema peripheral [Unknown]
  - Product administration interrupted [Unknown]

NARRATIVE: CASE EVENT DATE: 20211029
